FAERS Safety Report 20797369 (Version 1)
Quarter: 2022Q2

REPORT INFORMATION
  Report Type: Spontaneous
  Country: US (occurrence: None)
  Receive Date: 20220505
  Receipt Date: 20220505
  Transmission Date: 20220721
  Serious: Yes (Hospitalization)
  Sender: FDA-Public Use
  Company Number: None

PATIENT
  Age: 49 Year
  Sex: Female

DRUGS (1)
  1. CAPECITABINE [Suspect]
     Active Substance: CAPECITABINE
     Dosage: FREQUENCY : TWICE A DAY;?
     Route: 048
     Dates: start: 2022

REACTIONS (5)
  - Dry mouth [None]
  - Dry skin [None]
  - Dry skin [None]
  - Fatigue [None]
  - Off label use [None]

NARRATIVE: CASE EVENT DATE: 20220214
